FAERS Safety Report 15201111 (Version 3)
Quarter: 2019Q3

REPORT INFORMATION
  Report Type: Spontaneous
  Country: US (occurrence: US)
  Receive Date: 20180726
  Receipt Date: 20190902
  Transmission Date: 20191004
  Serious: Yes (Other)
  Sender: FDA-Public Use
  Company Number: US-PFIZER INC-2018298443

PATIENT
  Age: 55 Year
  Sex: Female

DRUGS (4)
  1. GABAPENTIN. [Suspect]
     Active Substance: GABAPENTIN
     Indication: VTH NERVE INJURY
     Dosage: 300 MG, 1X/DAY(GRADUALLY INCREASED DOSAGES FROM 300MG A DAY TO 1800MG A DAY)
     Dates: start: 201610, end: 20170420
  2. BACLOFEN. [Suspect]
     Active Substance: BACLOFEN
     Dosage: 10 MG, 3X/DAY
     Dates: end: 201705
  3. GABAPENTIN. [Suspect]
     Active Substance: GABAPENTIN
     Dosage: 600 MG, 3X/DAY
     Dates: end: 201710
  4. BACLOFEN. [Suspect]
     Active Substance: BACLOFEN
     Indication: VTH NERVE INJURY
     Dosage: 10 MG, 3X/DAY
     Dates: start: 201612, end: 20170420

REACTIONS (14)
  - Tendon discomfort [Unknown]
  - Balance disorder [Unknown]
  - Bronchial obstruction [Unknown]
  - Sedation [Unknown]
  - Visual impairment [Unknown]
  - Fatigue [Unknown]
  - Insomnia [Unknown]
  - Dyspnoea [Unknown]
  - Ligament disorder [Unknown]
  - Vision blurred [Unknown]
  - Peripheral swelling [Unknown]
  - Atrial fibrillation [Recovering/Resolving]
  - Gait disturbance [Unknown]
  - Feeling abnormal [Unknown]

NARRATIVE: CASE EVENT DATE: 2017
